FAERS Safety Report 11808206 (Version 1)
Quarter: 2015Q4

REPORT INFORMATION
  Report Type: Spontaneous
  Country: US (occurrence: US)
  Receive Date: 20151207
  Receipt Date: 20151207
  Transmission Date: 20160305
  Serious: No
  Sender: FDA-Public Use
  Company Number: US-NOVELLABS-2015-US-000050

PATIENT
  Age: 77 Year
  Sex: Female
  Weight: 97.52 kg

DRUGS (2)
  1. TAKES A LOT OF MEDICATION [Concomitant]
  2. POLYETHYLENE GLYCOL 3350. [Suspect]
     Active Substance: POLYETHYLENE GLYCOL 3350
     Dosage: 17GM, ONCE A DAY AT NIGHT,
     Route: 048
     Dates: start: 20150501, end: 20150501

REACTIONS (2)
  - Fatigue [Recovered/Resolved]
  - Malaise [Recovered/Resolved]

NARRATIVE: CASE EVENT DATE: 20150501
